FAERS Safety Report 17750375 (Version 3)
Quarter: 2020Q3

REPORT INFORMATION
  Report Type: Spontaneous
  Country: US (occurrence: US)
  Receive Date: 20200506
  Receipt Date: 20200904
  Transmission Date: 20201102
  Serious: No
  Sender: FDA-Public Use
  Company Number: US-PFIZER INC-2020181422

PATIENT
  Age: 67 Year
  Sex: Female

DRUGS (1)
  1. IBRANCE [Suspect]
     Active Substance: PALBOCICLIB
     Indication: BREAST CANCER METASTATIC
     Dosage: 125 MG, CYCLIC (TAKE 1 P.O(PER ORAL) EVERY DAY THEN HOLD 7 DAYS)
     Route: 048

REACTIONS (3)
  - Rhinorrhoea [Unknown]
  - Lacrimation increased [Unknown]
  - Alopecia [Unknown]
